FAERS Safety Report 11624557 (Version 2)
Quarter: 2015Q4

REPORT INFORMATION
  Report Type: Spontaneous
  Country: US (occurrence: US)
  Receive Date: 20151013
  Receipt Date: 20151214
  Transmission Date: 20160304
  Serious: No
  Sender: FDA-Public Use
  Company Number: US-009507513-1510USA003608

PATIENT

DRUGS (1)
  1. JANUMET [Suspect]
     Active Substance: METFORMIN HYDROCHLORIDE\SITAGLIPTIN PHOSPHATE
     Dosage: UNK, 50 MG -1000 MG 1 STANDARD PACKAGE BOTTLE OF 180
     Route: 048

REACTIONS (2)
  - Low density lipoprotein increased [Unknown]
  - High density lipoprotein decreased [Unknown]
